FAERS Safety Report 14936225 (Version 4)
Quarter: 2018Q2

REPORT INFORMATION
  Report Type: Spontaneous
  Country: US (occurrence: US)
  Receive Date: 20180524
  Receipt Date: 20180625
  Transmission Date: 20180711
  Serious: Yes (Hospitalization)
  Sender: FDA-Public Use
  Company Number: US-BIOGEN-2018BI00577490

PATIENT
  Age: 46 Year
  Sex: Female

DRUGS (1)
  1. ZINBRYTA [Suspect]
     Active Substance: DACLIZUMAB
     Indication: MULTIPLE SCLEROSIS
     Dosage: TOTAL OF 4 DOSES.
     Route: 065
     Dates: start: 20171125, end: 2018

REACTIONS (4)
  - Cystitis [Recovered/Resolved with Sequelae]
  - Mobility decreased [Unknown]
  - Diarrhoea [Recovered/Resolved with Sequelae]
  - Multiple sclerosis [Recovered/Resolved with Sequelae]

NARRATIVE: CASE EVENT DATE: 201804
